FAERS Safety Report 24742536 (Version 1)
Quarter: 2024Q4

REPORT INFORMATION
  Report Type: Spontaneous
  Country: FR (occurrence: FR)
  Receive Date: 20241217
  Receipt Date: 20241217
  Transmission Date: 20250115
  Serious: Yes (Hospitalization)
  Sender: CHEPLAPHARM
  Company Number: None

PATIENT
  Age: 15 Year
  Sex: Female
  Weight: 37 kg

DRUGS (2)
  1. CLONAZEPAM [Suspect]
     Active Substance: CLONAZEPAM
     Dosage: ESTIMATED DOSE INGESTED BETWEEN 2 AND 15 ML, I.E. BETWEEN 5 AND 37.5 MG OF CLONAZEPAM
     Route: 048
     Dates: start: 20241112, end: 20241112
  2. CLOBAZAM [Suspect]
     Active Substance: CLOBAZAM
     Dosage: 3 URBANYL 10MG TABLETS?DAILY DOSE: 30 MILLIGRAM
     Route: 048
     Dates: start: 20241112, end: 20241112

REACTIONS (5)
  - Coma [Recovered/Resolved]
  - Accidental exposure to product [Recovered/Resolved]
  - Gait disturbance [Unknown]
  - Miosis [Unknown]
  - Pain [Unknown]

NARRATIVE: CASE EVENT DATE: 20241112
